FAERS Safety Report 17969697 (Version 1)
Quarter: 2020Q3

REPORT INFORMATION
  Report Type: Spontaneous
  Country: None (occurrence: US)
  Receive Date: 20200701
  Receipt Date: 20200701
  Transmission Date: 20201103
  Serious: No
  Sender: FDA-Public Use
  Company Number: US-BIOCON-BCN-2020-000660

PATIENT
  Age: 73 Year
  Sex: Female
  Weight: 59 kg

DRUGS (1)
  1. ROSUVASTATIN CALCIUM. [Suspect]
     Active Substance: ROSUVASTATIN CALCIUM
     Indication: BLOOD CHOLESTEROL INCREASED
     Dosage: THE PATIENT TOOK MEDICINE FR ABOUT 10 DAYS (AROUND 08?MAR?2020 TO 18?MAR?2020)
     Route: 048
     Dates: start: 20200308

REACTIONS (6)
  - Feeling abnormal [Recovered/Resolved]
  - Pain in extremity [Recovered/Resolved]
  - Gait disturbance [Recovered/Resolved]
  - Product quality issue [Unknown]
  - Neck pain [Recovered/Resolved]
  - Arthralgia [Recovered/Resolved]

NARRATIVE: CASE EVENT DATE: 202003
